FAERS Safety Report 18940792 (Version 6)
Quarter: 2023Q4

REPORT INFORMATION
  Report Type: Report from Study
  Country: GB (occurrence: GB)
  Receive Date: 20210225
  Receipt Date: 20231115
  Transmission Date: 20240109
  Serious: Yes (Life-Threatening, Other)
  Sender: FDA-Public Use
  Company Number: GB-TAKEDA-2020TUS038603

PATIENT
  Sex: Female

DRUGS (1)
  1. VEDOLIZUMAB [Suspect]
     Active Substance: VEDOLIZUMAB
     Indication: Crohn^s disease
     Dosage: 108 MILLIGRAM, Q2WEEKS
     Route: 058
     Dates: start: 20200826

REACTIONS (7)
  - Cerebrovascular accident [Unknown]
  - Breast cancer female [Unknown]
  - Fall [Unknown]
  - Medication error [Unknown]
  - Mass [Unknown]
  - Breast mass [Unknown]
  - Inappropriate schedule of product administration [Unknown]
